FAERS Safety Report 13688581 (Version 2)
Quarter: 2017Q3

REPORT INFORMATION
  Report Type: Spontaneous
  Country: TR (occurrence: TR)
  Receive Date: 20170626
  Receipt Date: 20170727
  Transmission Date: 20171127
  Serious: Yes (Congenital Anomaly)
  Sender: FDA-Public Use
  Company Number: TR-UCBSA-2017024646

PATIENT
  Sex: Male

DRUGS (2)
  1. DEPAKIN [Concomitant]
     Active Substance: VALPROATE SODIUM
     Indication: PRODUCT USED FOR UNKNOWN INDICATION
     Dosage: 500 MG, 2X/DAY (BID)
  2. KEPPRA [Suspect]
     Active Substance: LEVETIRACETAM
     Indication: EPILEPSY
     Dosage: 1000 MG 2X1.5
     Route: 064
     Dates: start: 20140918

REACTIONS (4)
  - Larsen syndrome [Unknown]
  - Foetal anticonvulsant syndrome [Not Recovered/Not Resolved]
  - Mental disorder [Unknown]
  - Foetal exposure during pregnancy [Unknown]

NARRATIVE: CASE EVENT DATE: 20140918
